FAERS Safety Report 8241873-4 (Version None)
Quarter: 2012Q1

REPORT INFORMATION
  Report Type: 
  Country: None (occurrence: None)
  Receive Date: 20120328
  Receipt Date: 20120316
  Transmission Date: 20120608
  Serious: Yes (Hospitalization, Other)
  Sender: FDA-Public Use
  Company Number: US-MYLANLABS-2012S1006335

PATIENT
  Sex: Female
  Weight: 77.57 kg

DRUGS (20)
  1. ASPIRIN [Concomitant]
  2. CELEBREX [Concomitant]
  3. NITROGLYCERIN [Concomitant]
  4. AMARYL [Concomitant]
  5. ZETIA [Concomitant]
  6. NIACIN [Concomitant]
  7. MULTI-VITAMIN [Concomitant]
  8. LECITHIN [Concomitant]
  9. PROPRANOLOL [Concomitant]
  10. CYANOCOBALAMIN [Concomitant]
  11. PLAVIX [Concomitant]
  12. VICODIN [Concomitant]
  13. IMDUR [Concomitant]
  14. LASIX [Concomitant]
  15. DURAGESIC-100 [Concomitant]
  16. LISINOPRIL [Concomitant]
  17. DIGOXIN [Suspect]
     Dates: start: 20040917, end: 20081210
  18. INNOPRAN XL [Concomitant]
  19. PROPYLTHIOURACIL [Concomitant]
  20. LYRICA [Concomitant]

REACTIONS (31)
  - ATRIAL FIBRILLATION [None]
  - CHEST DISCOMFORT [None]
  - CARDIOMEGALY [None]
  - CARDIAC VALVE DISEASE [None]
  - TRANSFUSION [None]
  - KNEE ARTHROPLASTY [None]
  - PAIN [None]
  - GASTROOESOPHAGEAL REFLUX DISEASE [None]
  - LABORATORY TEST ABNORMAL [None]
  - GAIT DISTURBANCE [None]
  - RHEUMATOID ARTHRITIS [None]
  - TYPE 2 DIABETES MELLITUS [None]
  - AORTIC STENOSIS [None]
  - HYPERHIDROSIS [None]
  - OSTEOARTHRITIS [None]
  - OSTEOPOROSIS [None]
  - DYSPNOEA [None]
  - HIATUS HERNIA [None]
  - SYNCOPE [None]
  - ESSENTIAL HYPERTENSION [None]
  - FEBRILE NONHAEMOLYTIC TRANSFUSION REACTION [None]
  - NAUSEA [None]
  - BRADYCARDIA [None]
  - HYPOTENSION [None]
  - ILL-DEFINED DISORDER [None]
  - WALKING DISABILITY [None]
  - ANGINA PECTORIS [None]
  - MUSCULOSKELETAL STIFFNESS [None]
  - CORONARY ARTERY DISEASE [None]
  - ANAEMIA [None]
  - HYPOTHYROIDISM [None]
